FAERS Safety Report 14600734 (Version 1)
Quarter: 2018Q1

REPORT INFORMATION
  Report Type: Spontaneous
  Country: US (occurrence: US)
  Receive Date: 20180305
  Receipt Date: 20180305
  Transmission Date: 20180509
  Serious: No
  Sender: FDA-Public Use
  Company Number: US-SUNOVION-2018SUN000672

PATIENT

DRUGS (1)
  1. LATUDA [Suspect]
     Active Substance: LURASIDONE HYDROCHLORIDE
     Dosage: UNK, UNK (REGIMEN #1)
     Route: 048

REACTIONS (6)
  - Malaise [Unknown]
  - Crying [Unknown]
  - Feeling abnormal [Unknown]
  - Dissociation [Unknown]
  - Insomnia [Unknown]
  - Screaming [Unknown]
